FAERS Safety Report 8031882-2 (Version None)
Quarter: 2012Q1

REPORT INFORMATION
  Report Type: 
  Country: None (occurrence: None)
  Receive Date: 20120109
  Receipt Date: 20111228
  Transmission Date: 20120608
  Serious: Yes (Hospitalization)
  Sender: FDA-Public Use
  Company Number: DK-WATSON-2011-22699

PATIENT
  Age: 70 Year
  Sex: Male

DRUGS (1)
  1. METFORMIN HCL [Suspect]
     Indication: TYPE 2 DIABETES MELLITUS
     Dosage: 63 G, SINGLE

REACTIONS (5)
  - RENAL IMPAIRMENT [None]
  - BODY TEMPERATURE DECREASED [None]
  - BLOOD PRESSURE DECREASED [None]
  - OVERDOSE [None]
  - LACTIC ACIDOSIS [None]
